FAERS Safety Report 5992943-2 (Version None)
Quarter: 2008Q4

REPORT INFORMATION
  Report Type: 
  Country: None (occurrence: None)
  Receive Date: 20081212
  Receipt Date: 20081208
  Transmission Date: 20090506
  Serious: Yes (Other)
  Sender: FDA-Public Use
  Company Number: US-JNJFOC-20081202438

PATIENT
  Sex: Female
  Weight: 62.14 kg

DRUGS (3)
  1. DURAGESIC-100 [Suspect]
     Route: 062
  2. DURAGESIC-100 [Suspect]
     Indication: PAIN
     Route: 062
  3. MORPHINE [Suspect]
     Indication: PAIN
     Route: 048

REACTIONS (6)
  - FALL [None]
  - HEAD INJURY [None]
  - HYPOTHYROIDISM [None]
  - PRE-EXISTING DISEASE [None]
  - WEIGHT INCREASED [None]
  - WRONG TECHNIQUE IN DRUG USAGE PROCESS [None]
